FAERS Safety Report 8362826-1 (Version None)
Quarter: 2012Q2

REPORT INFORMATION
  Report Type: 
  Country: None (occurrence: None)
  Receive Date: 20120516
  Receipt Date: 20120511
  Transmission Date: 20120825
  Serious: Yes (Death, Hospitalization, Other)
  Sender: FDA-Public Use
  Company Number: PHHY2012JP014985

PATIENT
  Age: 57 Year
  Sex: Female

DRUGS (3)
  1. TPN [Concomitant]
  2. SANDOSTATIN [Suspect]
     Dosage: UNK UKN, UNK
  3. SANDOSTATIN [Suspect]
     Indication: INTESTINAL OBSTRUCTION
     Dosage: UNK UKN, UNK
     Route: 058

REACTIONS (8)
  - ABDOMINAL DISTENSION [None]
  - THERAPEUTIC RESPONSE DECREASED [None]
  - GENERAL PHYSICAL HEALTH DETERIORATION [None]
  - VOMITING [None]
  - DEATH [None]
  - INTESTINAL OBSTRUCTION [None]
  - MALIGNANT ASCITES [None]
  - NEOPLASM MALIGNANT [None]
